FAERS Safety Report 8215124-0 (Version None)
Quarter: 2012Q1

REPORT INFORMATION
  Report Type: 
  Country: None (occurrence: None)
  Receive Date: 20120316
  Receipt Date: 20120313
  Transmission Date: 20120608
  Serious: Yes (Death, Life-Threatening, Other)
  Sender: FDA-Public Use
  Company Number: JP-PFIZER INC-2010022687

PATIENT
  Age: 32 Year
  Sex: Male
  Weight: 58.3 kg

DRUGS (10)
  1. FUROSEMIDE [Concomitant]
     Dosage: UNK
     Route: 048
  2. ALLOPURINOL [Concomitant]
     Dosage: UNK
     Route: 048
  3. ALDACTONE [Concomitant]
     Dosage: UNK
     Route: 048
  4. SILDENAFIL CITRATE [Suspect]
     Indication: PULMONARY ARTERIAL HYPERTENSION
     Dosage: 20 MG, 3X/DAY
     Route: 048
     Dates: start: 20080422
  5. SLOW-K [Concomitant]
     Dosage: UNK
     Route: 048
  6. FLOLAN [Concomitant]
     Indication: PULMONARY ARTERIAL HYPERTENSION
     Dosage: UNK
     Route: 042
     Dates: end: 20081124
  7. TRACLEER [Concomitant]
     Indication: PULMONARY ARTERIAL HYPERTENSION
     Dosage: UNK
     Route: 048
  8. GLEEVEC [Concomitant]
     Indication: PULMONARY ARTERIAL HYPERTENSION
     Dosage: UNK
     Route: 048
  9. ACARDI [Concomitant]
     Dosage: UNK
     Route: 048
  10. RINDERON-VG [Concomitant]
     Dosage: UNK
     Route: 062

REACTIONS (1)
  - PULMONARY VENO-OCCLUSIVE DISEASE [None]
